FAERS Safety Report 7530534-2 (Version None)
Quarter: 2011Q2

REPORT INFORMATION
  Report Type: 
  Country: None (occurrence: None)
  Receive Date: 20110607
  Receipt Date: 20110529
  Transmission Date: 20111010
  Serious: Yes (Hospitalization, Other)
  Sender: FDA-Public Use
  Company Number: GB-SANOFI-AVENTIS-2011SA034068

PATIENT
  Age: 87 Year
  Sex: Male

DRUGS (2)
  1. LANTUS [Suspect]
  2. LANTUS [Suspect]

REACTIONS (8)
  - CONFUSIONAL STATE [None]
  - DYSARTHRIA [None]
  - HALLUCINATION [None]
  - CHARLES BONNET SYNDROME [None]
  - MEDICATION ERROR [None]
  - HYPERHIDROSIS [None]
  - BLOOD GLUCOSE FLUCTUATION [None]
  - PALPITATIONS [None]
